FAERS Safety Report 7437111-2 (Version None)
Quarter: 2011Q2

REPORT INFORMATION
  Report Type: 
  Country: None (occurrence: None)
  Receive Date: 20110426
  Receipt Date: 20110415
  Transmission Date: 20111010
  Serious: No
  Sender: FDA-Public Use
  Company Number: FI-SANOFI-AVENTIS-2011SA023134

PATIENT
  Age: 34 Year
  Sex: Female

DRUGS (1)
  1. ARAVA [Suspect]
     Route: 048
     Dates: end: 20100701

REACTIONS (1)
  - DRUG EXPOSURE DURING PREGNANCY [None]
